FAERS Safety Report 4449747-1 (Version None)
Quarter: 2004Q3

REPORT INFORMATION
  Report Type: 
  Country: None (occurrence: None)
  Receive Date: 20040913
  Receipt Date: 20040903
  Transmission Date: 20050211
  Serious: Yes (Other)
  Sender: FDA-Public Use
  Company Number: 2004-09-0374

PATIENT
  Age: 14 Week
  Sex: Female

DRUGS (1)
  1. INTRON A [Suspect]
     Indication: HAEMANGIOMA OF SKIN
     Dosage: 8.5 MONTH(S)

REACTIONS (1)
  - DEVELOPMENTAL DELAY [None]
